FAERS Safety Report 17805048 (Version 1)
Quarter: 2020Q2

REPORT INFORMATION
  Report Type: Spontaneous
  Country: DE (occurrence: DE)
  Receive Date: 20200519
  Receipt Date: 20200519
  Transmission Date: 20200714
  Serious: Yes (Death, Other)
  Sender: FDA-Public Use
  Company Number: DE-CHEPLA-C20201515

PATIENT
  Age: 58 Year
  Sex: Female

DRUGS (14)
  1. AMPHOTERICIN B. [Suspect]
     Active Substance: AMPHOTERICIN B
     Indication: ANTIFUNGAL PROPHYLAXIS
     Dosage: INHALATION WITH AMPHOTERICIN B 3 TIMES DAILY
     Route: 055
  2. METHYLPREDNISOLON [Suspect]
     Active Substance: METHYLPREDNISOLONE
     Indication: IMMUNOSUPPRESSION
  3. BASILIXIMAB [Concomitant]
     Active Substance: BASILIXIMAB
     Indication: IMMUNOSUPPRESSION
     Dosage: INDUCTION, ON DAY 0 AND 4
  4. TACROLIMUS. [Suspect]
     Active Substance: TACROLIMUS
     Indication: IMMUNOSUPPRESSION
  5. PREDNISONE. [Suspect]
     Active Substance: PREDNISONE
     Indication: IMMUNOSUPPRESSION
  6. MYCOPHENOLATE MOFETIL. [Suspect]
     Active Substance: MYCOPHENOLATE MOFETIL
     Indication: IMMUNOSUPPRESSION
  7. VANCOMYCIN [Concomitant]
     Active Substance: VANCOMYCIN
     Indication: ANTIBIOTIC THERAPY
     Route: 065
  8. VALGANCICLOVIR. [Suspect]
     Active Substance: VALGANCICLOVIR
     Indication: ANTIVIRAL PROPHYLAXIS
     Dosage: PROPHYLACTIC DOSAGE
     Route: 065
  9. MEROPENEM. [Concomitant]
     Active Substance: MEROPENEM
     Indication: ANTIBIOTIC THERAPY
     Route: 065
  10. CASPOFUNGIN [Concomitant]
     Active Substance: CASPOFUNGIN
     Indication: ANTIBIOTIC THERAPY
  11. GANCICLOVIR. [Suspect]
     Active Substance: GANCICLOVIR
     Indication: ANTIVIRAL PROPHYLAXIS
     Dosage: ^PROPHYLACTIC DOSAGE^
     Route: 065
  12. MIDAZOLAM. [Suspect]
     Active Substance: MIDAZOLAM
     Indication: STATUS EPILEPTICUS
     Route: 065
  13. COTRIMOXAZOL [Suspect]
     Active Substance: SULFAMETHOXAZOLE\TRIMETHOPRIM
     Indication: ANTIFUNGAL PROPHYLAXIS
     Dosage: 2TIMES IN 1 WEEK
     Route: 048
  14. PROPOFOL. [Concomitant]
     Active Substance: PROPOFOL
     Indication: STATUS EPILEPTICUS
     Route: 065

REACTIONS (19)
  - Immunosuppressant drug level increased [Recovered/Resolved]
  - Posterior reversible encephalopathy syndrome [Not Recovered/Not Resolved]
  - Status epilepticus [Recovered/Resolved]
  - Headache [Unknown]
  - Gamma-glutamyltransferase increased [Unknown]
  - Product use in unapproved indication [Unknown]
  - Hypervolaemia [Recovered/Resolved]
  - Leukopenia [Unknown]
  - Nausea [Unknown]
  - Respiratory alkalosis [Unknown]
  - Product use issue [Unknown]
  - Peripheral venous disease [Recovered/Resolved]
  - Hyperammonaemia [Not Recovered/Not Resolved]
  - Coma [Not Recovered/Not Resolved]
  - Vasogenic cerebral oedema [Fatal]
  - Neutropenia [Unknown]
  - Anaemia [Unknown]
  - Alanine aminotransferase increased [Unknown]
  - Bacterial sepsis [Not Recovered/Not Resolved]
